FAERS Safety Report 5325754-1 (Version None)
Quarter: 2007Q2

REPORT INFORMATION
  Report Type: 
  Country: None (occurrence: None)
  Receive Date: 20070509
  Receipt Date: 20070430
  Transmission Date: 20071010
  Serious: Yes (Other)
  Sender: FDA-Public Use
  Company Number: 2007SP008236

PATIENT
  Age: 44 Year
  Sex: Male

DRUGS (1)
  1. INTRON A [Suspect]
     Indication: HEPATITIS C
     Dates: start: 19950101

REACTIONS (2)
  - HOMICIDAL IDEATION [None]
  - SUICIDAL IDEATION [None]
